FAERS Safety Report 11150382 (Version 1)
Quarter: 2015Q2

REPORT INFORMATION
  Report Type: Report from Study
  Country: BR (occurrence: BR)
  Receive Date: 20150531
  Receipt Date: 20150531
  Transmission Date: 20150821
  Serious: Yes (Other)
  Sender: FDA-Public Use
  Company Number: PHHY2015BR002464

PATIENT
  Age: 85 Year
  Sex: Female
  Weight: 62 kg

DRUGS (1)
  1. DIOVAN AMLO FIX [Suspect]
     Active Substance: AMLODIPINE\VALSARTAN
     Indication: HYPERTENSION
     Dosage: 1 DF (160/5 MG), QD (START: 5 YEARS AGO)
     Route: 048

REACTIONS (5)
  - Peripheral swelling [Recovered/Resolved]
  - Labyrinthitis [Recovered/Resolved]
  - Fall [Recovered/Resolved]
  - Malaise [Unknown]
  - Hypoaesthesia [Recovered/Resolved]

NARRATIVE: CASE EVENT DATE: 201411
